FAERS Safety Report 15429063 (Version 4)
Quarter: 2019Q1

REPORT INFORMATION
  Report Type: Spontaneous
  Country: US (occurrence: US)
  Receive Date: 20180926
  Receipt Date: 20190306
  Transmission Date: 20190417
  Serious: Yes (Other)
  Sender: FDA-Public Use
  Company Number: US-PFIZER INC-2018289480

PATIENT
  Age: 67 Year
  Sex: Female
  Weight: 77.11 kg

DRUGS (4)
  1. IBRANCE [Suspect]
     Active Substance: PALBOCICLIB
     Indication: OVARIAN CANCER
     Dosage: 75 MG, CYCLIC (ONCE EVERY DAY FOR 3 WEEKS ON AND 1 WEEK OFF)
     Route: 048
     Dates: start: 20180717, end: 201808
  2. LETROZOLE. [Suspect]
     Active Substance: LETROZOLE
     Indication: OVARIAN CANCER
     Dosage: 2.5 MG, 1X/DAY (ONCE PER DAY)
     Route: 048
     Dates: start: 20180717
  3. IBRANCE [Suspect]
     Active Substance: PALBOCICLIB
     Dosage: UNK, CYCLIC, (1 TABLET FOR 2 DAYS AND THEN OFF FOR 1 DAY AND TO CONTINUE THAT DOSING SCHEDULE)
  4. IBRANCE [Suspect]
     Active Substance: PALBOCICLIB
     Dosage: 75 MG, CYCLIC (21 DAYS ON AND OFF FOR 7 DAYS)
     Route: 048
     Dates: start: 20190114, end: 20190202

REACTIONS (6)
  - Tumour pain [Unknown]
  - Gingival bleeding [Unknown]
  - Dermatomyositis [Recovered/Resolved]
  - Product use in unapproved indication [Unknown]
  - Platelet count decreased [Unknown]
  - White blood cell count decreased [Unknown]

NARRATIVE: CASE EVENT DATE: 201808
